FAERS Safety Report 15677254 (Version 2)
Quarter: 2018Q4

REPORT INFORMATION
  Report Type: Spontaneous
  Country: JP (occurrence: JP)
  Receive Date: 20181130
  Receipt Date: 20181221
  Transmission Date: 20190205
  Serious: No
  Sender: FDA-Public Use
  Company Number: JP-ALLERGAN-1855554US

PATIENT
  Age: 10 Decade
  Sex: Female

DRUGS (1)
  1. BOTOX [Suspect]
     Active Substance: ONABOTULINUMTOXINA
     Indication: MUSCLE SPASMS
     Dosage: UNK, SINGLE
     Route: 030
     Dates: start: 20180710, end: 20180710

REACTIONS (1)
  - No adverse event [Unknown]
